FAERS Safety Report 16296525 (Version 6)
Quarter: 2020Q1

REPORT INFORMATION
  Report Type: Spontaneous
  Country: US (occurrence: US)
  Receive Date: 20190510
  Receipt Date: 20200206
  Transmission Date: 20200409
  Serious: Yes (Other)
  Sender: FDA-Public Use
  Company Number: US-PFIZER INC-2019197405

PATIENT
  Age: 71 Year
  Sex: Female

DRUGS (5)
  1. DOXYCYCLINE. [Concomitant]
     Active Substance: DOXYCYCLINE
     Dosage: UNK
  2. FASLODEX [Concomitant]
     Active Substance: FULVESTRANT
     Dosage: UNK
  3. IBRANCE [Suspect]
     Active Substance: PALBOCICLIB
     Dosage: 100 MG, UNK
     Dates: end: 202001
  4. PLAFIX [Concomitant]
     Dosage: UNK
  5. IBRANCE [Suspect]
     Active Substance: PALBOCICLIB
     Indication: BREAST CANCER METASTATIC
     Dosage: UNK, CYCLIC
     Dates: end: 20190729

REACTIONS (13)
  - Headache [Unknown]
  - Immunodeficiency [Unknown]
  - Rash [Unknown]
  - White blood cell count decreased [Unknown]
  - Feelings of worthlessness [Unknown]
  - Alopecia [Unknown]
  - Pain [Unknown]
  - Asthenia [Unknown]
  - Tumour marker increased [Unknown]
  - Stomatitis [Unknown]
  - Fatigue [Recovering/Resolving]
  - Malaise [Unknown]
  - Laboratory test abnormal [Unknown]
